FAERS Safety Report 5222446-4 (Version None)
Quarter: 2007Q1

REPORT INFORMATION
  Report Type: 
  Country: None (occurrence: None)
  Receive Date: 20070129
  Receipt Date: 20060627
  Transmission Date: 20070707
  Serious: No
  Sender: FDA-Public Use
  Company Number: US-BRISTOL-MYERS SQUIBB COMPANY-13425772

PATIENT
  Sex: Female
  Weight: 68 kg

DRUGS (7)
  1. TAXOL [Suspect]
     Indication: OVARIAN CANCER
     Dates: start: 20041001, end: 20050210
  2. PLATINOL [Suspect]
     Indication: OVARIAN CANCER
     Dates: start: 20041001, end: 20050210
  3. BENADRYL [Concomitant]
     Indication: CHEMOTHERAPY
     Route: 042
     Dates: start: 20041001, end: 20050210
  4. PEPCID [Concomitant]
     Indication: CHEMOTHERAPY
     Route: 042
     Dates: start: 20041001, end: 20050210
  5. DECADRON [Concomitant]
     Indication: CHEMOTHERAPY
     Route: 042
     Dates: start: 20041001, end: 20050210
  6. ZOLOFT [Concomitant]
  7. SENOKOT [Concomitant]

REACTIONS (17)
  - ALOPECIA [None]
  - BONE PAIN [None]
  - DISTURBANCE IN ATTENTION [None]
  - DRY EYE [None]
  - DRY SKIN [None]
  - FATIGUE [None]
  - HAIR COLOUR CHANGES [None]
  - HAIR TEXTURE ABNORMAL [None]
  - MUSCLE SPASMS [None]
  - NAIL DISORDER [None]
  - NEUROPATHY [None]
  - OEDEMA PERIPHERAL [None]
  - PAIN [None]
  - PHOTOPHOBIA [None]
  - PRURITUS [None]
  - SCAB [None]
  - VISION BLURRED [None]
